FAERS Safety Report 8118651-X (Version None)
Quarter: 2012Q1

REPORT INFORMATION
  Report Type: 
  Country: None (occurrence: None)
  Receive Date: 20120207
  Receipt Date: 20120130
  Transmission Date: 20120608
  Serious: Yes (Hospitalization)
  Sender: FDA-Public Use
  Company Number: US-BAYER-201032111NA

PATIENT
  Age: 40 Year
  Sex: Female
  Weight: 100 kg

DRUGS (26)
  1. HYDROCODONE BITARTRATE [Concomitant]
     Indication: MIGRAINE
     Dosage: 7.5 MG, PRN
     Route: 048
     Dates: start: 20080818
  2. AUGMENTIN '125' [Concomitant]
  3. BENADRYL [Concomitant]
  4. MAXALT [Concomitant]
     Indication: MIGRAINE
     Dosage: 10 MG, AS DIRECTED
     Route: 048
     Dates: start: 20080813
  5. IBUPROFEN [Concomitant]
     Indication: PAIN
     Dosage: 200 MG, AS DIRECTED
     Route: 048
     Dates: start: 20080803
  6. VALIUM [Concomitant]
  7. FLUCONAZOLE [Concomitant]
     Indication: FUNGAL INFECTION
     Dosage: 200 MG, BIW
     Route: 048
     Dates: start: 20080812
  8. SPIRIVA [Concomitant]
     Indication: ASTHMA
     Dosage: 18MCG DAILY
     Route: 055
     Dates: start: 20080819
  9. TOBRADEX [Concomitant]
     Indication: LACRIMAL DISORDER
     Dosage: 2 DROPS AS DIRECTED
     Dates: start: 20080729
  10. AMOXICILLIN [Concomitant]
     Indication: INFECTION
     Dosage: 875 MG, BID
     Route: 048
     Dates: start: 20080812, end: 20080822
  11. SERTRALINE HYDROCHLORIDE [Concomitant]
     Indication: DEPRESSION
     Dosage: 100 MG, 1.5 DAILY
     Route: 048
     Dates: start: 20080819
  12. LORTAB [Concomitant]
  13. BUSPIRONE HCL [Concomitant]
     Indication: DEPRESSION
     Dosage: 15 MG, BID
     Route: 048
     Dates: start: 20080819
  14. DIAZEPAM [Concomitant]
     Indication: ANXIETY
     Dosage: 5 MG, PRN
     Route: 048
     Dates: start: 20080818
  15. YASMIN [Suspect]
     Indication: CYST
     Dosage: UNK
     Dates: start: 20080301, end: 20080601
  16. DROSPIRENONE AND ETHINYL ESTRADIOL [Suspect]
     Indication: CYST
     Dosage: UNK
     Dates: start: 20080711, end: 20080801
  17. PROMETHAZINE [Concomitant]
     Indication: MIGRAINE
     Dosage: 25 MG, AS DIRECTED
     Route: 048
     Dates: start: 20080818
  18. BUPROPION HYDROCHLORIDE [Concomitant]
     Indication: DEPRESSION
     Dosage: 150 MG, BID
     Route: 048
     Dates: start: 20080819
  19. PREDNISONE TAB [Concomitant]
     Indication: INFECTION
     Dosage: 20 MG, AS DIRECTED
     Route: 048
     Dates: start: 20080818
  20. PREVACID [Concomitant]
     Indication: GASTROOESOPHAGEAL REFLUX DISEASE
     Dosage: 30 MG, BID
     Route: 048
     Dates: start: 20080814
  21. SINGULAIR [Concomitant]
     Indication: ASTHMA
     Dosage: 10 MG, DAILY
     Route: 048
     Dates: start: 20080819
  22. ZOLPIDEM TARTRATE [Concomitant]
     Indication: SLEEP DISORDER THERAPY
     Dosage: 10 MG, AS NEEDED AT BEDTIME
     Route: 048
     Dates: start: 20080819
  23. PHENERGAN [Concomitant]
  24. NAPROXEN [Concomitant]
  25. SYMBICORT [Concomitant]
     Indication: ASTHMA
     Dosage: 160-4.5MCG TWICE DAILY
     Route: 055
     Dates: start: 20080729
  26. CIPROFLOXACIN [Concomitant]

REACTIONS (6)
  - OEDEMA PERIPHERAL [None]
  - DEEP VEIN THROMBOSIS [None]
  - GENERAL PHYSICAL HEALTH DETERIORATION [None]
  - ANXIETY [None]
  - PAIN IN EXTREMITY [None]
  - EMOTIONAL DISTRESS [None]
